FAERS Safety Report 5062849-4 (Version None)
Quarter: 2006Q3

REPORT INFORMATION
  Report Type: 
  Country: None (occurrence: None)
  Receive Date: 20060724
  Receipt Date: 20060720
  Transmission Date: 20061208
  Serious: Yes (Death, Hospitalization)
  Sender: FDA-Public Use
  Company Number: 2005P1000391

PATIENT
  Age: 73 Year
  Sex: Male
  Weight: 82 kg

DRUGS (13)
  1. RETEPLASE (RETEPLASE) [Suspect]
     Indication: ACUTE MYOCARDIAL INFARCTION
     Dosage: IV
     Route: 042
     Dates: start: 20050523
  2. REOPRO [Suspect]
     Indication: ACUTE MYOCARDIAL INFARCTION
     Dosage: IV
     Route: 042
     Dates: start: 20050523, end: 20050523
  3. ASPIRIN [Concomitant]
  4. HEPARIN [Concomitant]
  5. CLOPIDOGREL [Concomitant]
  6. CARVEDILOL [Concomitant]
  7. CILAZAPRIL [Concomitant]
  8. AMIODARONE HCL [Concomitant]
  9. FUROSEMIDE [Concomitant]
  10. CEFTAZIDINE [Concomitant]
  11. RANITIDINE [Concomitant]
  12. METOCLOPRAMIDE [Concomitant]
  13. CLEXANE [Concomitant]

REACTIONS (10)
  - BLOOD GLUCOSE INCREASED [None]
  - BRADYCARDIA [None]
  - CARDIAC ARREST [None]
  - MULTI-ORGAN FAILURE [None]
  - PNEUMONIA [None]
  - PULMONARY OEDEMA [None]
  - RESPIRATORY FAILURE [None]
  - RESPIRATORY TRACT INFECTION FUNGAL [None]
  - SEPTIC SHOCK [None]
  - VENTRICULAR FIBRILLATION [None]
